FAERS Safety Report 16849535 (Version 1)
Quarter: 2019Q3

REPORT INFORMATION
  Report Type: Spontaneous
  Country: SE (occurrence: SE)
  Receive Date: 20190925
  Receipt Date: 20190925
  Transmission Date: 20191005
  Serious: Yes (Hospitalization)
  Sender: FDA-Public Use
  Company Number: SE-TEVA-2019-SE-1111769

PATIENT
  Age: 37 Year
  Sex: Female

DRUGS (3)
  1. LERGIGAN [PROMETHAZINE HYDROCHLORIDE] [Suspect]
     Active Substance: PROMETHAZINE HYDROCHLORIDE
     Dosage: 20 TABLETTER
     Route: 048
     Dates: start: 20190726, end: 20190726
  2. PROPAVAN [Suspect]
     Active Substance: PROPIOMAZINE
     Dosage: 20 ST
     Dates: start: 20190726, end: 20190726
  3. FLUOXETINE [Suspect]
     Active Substance: FLUOXETINE HYDROCHLORIDE
     Dates: start: 20190726, end: 20190726

REACTIONS (9)
  - Blood bicarbonate increased [Unknown]
  - Electrocardiogram QT prolonged [Unknown]
  - Blood lactic acid increased [Unknown]
  - Blood pressure decreased [Unknown]
  - Ventricular extrasystoles [Unknown]
  - Base excess increased [Unknown]
  - pH body fluid increased [Unknown]
  - Intentional self-injury [Unknown]
  - Intentional overdose [Unknown]

NARRATIVE: CASE EVENT DATE: 20190726
